FAERS Safety Report 12947480 (Version 7)
Quarter: 2020Q4

REPORT INFORMATION
  Report Type: Report from Study
  Country: JP (occurrence: JP)
  Receive Date: 20161116
  Receipt Date: 20201021
  Transmission Date: 20210113
  Serious: Yes (Life-Threatening, Hospitalization)
  Sender: FDA-Public Use
  Company Number: JP-NOVOPROD-518254

PATIENT
  Age: 8 Month
  Sex: Male
  Weight: 10.2 kg

DRUGS (16)
  1. NOVOSEVEN [Concomitant]
     Active Substance: COAGULATION FACTOR VIIA RECOMBINANT HUMAN
     Indication: FACTOR VIII DEFICIENCY
     Dosage: 1MG
     Route: 065
     Dates: end: 20161114
  2. BAKTAR [Concomitant]
     Active Substance: SULFAMETHOXAZOLE\TRIMETHOPRIM
     Indication: PROPHYLAXIS
     Dosage: 0.18 G, QD
     Route: 048
     Dates: start: 20161031
  3. INCREMIN [CYANOCOBALAMIN;FERRIC PYROPHOSPHATE;LYSINE HYDROCHLORIDE;PYR [Concomitant]
     Indication: IRON DEFICIENCY ANAEMIA
     Dosage: 4-6ML/DAY
     Route: 048
     Dates: start: 20161111, end: 20170807
  4. ULTIVA [Concomitant]
     Active Substance: REMIFENTANIL HYDROCHLORIDE
     Indication: ANAESTHESIA PROCEDURE
     Dosage: 4 MG, QD
     Route: 042
     Dates: start: 20161021
  5. CLAFORAN [Concomitant]
     Active Substance: CEFOTAXIME SODIUM
     Indication: PROPHYLAXIS
     Dosage: 900 MG, QD
     Route: 042
     Dates: start: 20161021, end: 20161027
  6. NOVOEIGHT [Suspect]
     Active Substance: ANTIHEMOPHILIC FACTOR, HUMAN RECOMBINANT
     Dosage: 500 IU, QD
     Route: 042
     Dates: start: 20161022, end: 20161024
  7. NOVOEIGHT [Suspect]
     Active Substance: ANTIHEMOPHILIC FACTOR, HUMAN RECOMBINANT
     Indication: FACTOR VIII DEFICIENCY
     Dosage: 1000 IU, QD
     Route: 042
     Dates: start: 20161021, end: 20161021
  8. MAGNESIUM OXIDE. [Concomitant]
     Active Substance: MAGNESIUM OXIDE
     Indication: CONSTIPATION
     Dosage: 0.45 G, QD
     Route: 048
     Dates: start: 20161019
  9. NOVOEIGHT [Suspect]
     Active Substance: ANTIHEMOPHILIC FACTOR, HUMAN RECOMBINANT
     Indication: IMMUNE TOLERANCE INDUCTION
     Dosage: 1000 IU, QD
     Route: 042
     Dates: start: 20161111
  10. NOVOEIGHT [Suspect]
     Active Substance: ANTIHEMOPHILIC FACTOR, HUMAN RECOMBINANT
     Indication: PROPHYLAXIS
     Dosage: 500 IU, QD
     Route: 042
     Dates: start: 20161014, end: 20161014
  11. NOVOEIGHT [Suspect]
     Active Substance: ANTIHEMOPHILIC FACTOR, HUMAN RECOMBINANT
     Dosage: 1000UT
     Route: 042
     Dates: start: 20161107, end: 20170308
  12. NOVOEIGHT [Suspect]
     Active Substance: ANTIHEMOPHILIC FACTOR, HUMAN RECOMBINANT
     Dosage: 500 IU, TIW
     Route: 042
     Dates: start: 20161026, end: 20161104
  13. NOVOEIGHT [Suspect]
     Active Substance: ANTIHEMOPHILIC FACTOR, HUMAN RECOMBINANT
     Indication: FACTOR VIII DEFICIENCY
     Dosage: 500 IU, QD
     Route: 042
     Dates: start: 20161018, end: 20161018
  14. NOVOEIGHT [Suspect]
     Active Substance: ANTIHEMOPHILIC FACTOR, HUMAN RECOMBINANT
     Dosage: 1500IU
     Route: 042
     Dates: start: 20170309
  15. FINIBAX [Concomitant]
     Active Substance: DORIPENEM MONOHYDRATE
     Indication: PROPHYLAXIS
     Dosage: 1.2 G, QD
     Route: 042
     Dates: start: 20161027, end: 20161028
  16. NOVOEIGHT [Suspect]
     Active Substance: ANTIHEMOPHILIC FACTOR, HUMAN RECOMBINANT
     Dosage: 500 IU, TIW
     Route: 042
     Dates: start: 20161106, end: 20161107

REACTIONS (3)
  - Subdural haematoma [Recovered/Resolved]
  - Respiratory syncytial virus infection [Recovered/Resolved]
  - Factor VIII inhibition [Not Recovered/Not Resolved]

NARRATIVE: CASE EVENT DATE: 20161024
